FAERS Safety Report 5064426-8 (Version None)
Quarter: 2006Q3

REPORT INFORMATION
  Report Type: 
  Country: None (occurrence: None)
  Receive Date: 20060728
  Receipt Date: 20060726
  Transmission Date: 20061208
  Serious: Yes (Other)
  Sender: FDA-Public Use
  Company Number: AU-BRISTOL-MYERS SQUIBB COMPANY-13454608

PATIENT

DRUGS (2)
  1. IRBESARTAN AND HYDROCHLOROTHIAZIDE [Suspect]
  2. NORVASC [Suspect]
     Indication: ESSENTIAL HYPERTENSION
     Route: 048

REACTIONS (2)
  - DIABETES MELLITUS [None]
  - HYPOTENSION [None]
